FAERS Safety Report 20813376 (Version 2)
Quarter: 2022Q2

REPORT INFORMATION
  Report Type: Spontaneous
  Country: SE (occurrence: SE)
  Receive Date: 20220511
  Receipt Date: 20220518
  Transmission Date: 20220721
  Serious: Yes (Other)
  Sender: FDA-Public Use
  Company Number: SE-ASTELLAS-2022US016814

PATIENT
  Age: 59 Year
  Sex: Female

DRUGS (21)
  1. REGADENOSON [Suspect]
     Active Substance: REGADENOSON
     Indication: Single photon emission computerised tomogram
     Dosage: 5 ML, SINGLE
     Route: 042
     Dates: start: 20220427, end: 20220427
  2. REGADENOSON [Suspect]
     Active Substance: REGADENOSON
     Indication: Single photon emission computerised tomogram
     Dosage: 5 ML, SINGLE
     Route: 042
     Dates: start: 20220427, end: 20220427
  3. REGADENOSON [Suspect]
     Active Substance: REGADENOSON
     Indication: Single photon emission computerised tomogram
     Dosage: 5 ML, SINGLE
     Route: 042
     Dates: start: 20220427, end: 20220427
  4. REGADENOSON [Suspect]
     Active Substance: REGADENOSON
     Indication: Single photon emission computerised tomogram
     Dosage: 5 ML, SINGLE
     Route: 042
     Dates: start: 20220427, end: 20220427
  5. REGADENOSON [Suspect]
     Active Substance: REGADENOSON
     Indication: Coronary artery occlusion
  6. REGADENOSON [Suspect]
     Active Substance: REGADENOSON
     Indication: Coronary artery occlusion
  7. REGADENOSON [Suspect]
     Active Substance: REGADENOSON
     Indication: Coronary artery occlusion
  8. REGADENOSON [Suspect]
     Active Substance: REGADENOSON
     Indication: Coronary artery occlusion
  9. PANTOPRAZOLE [Concomitant]
     Active Substance: PANTOPRAZOLE
     Indication: Product used for unknown indication
     Dosage: UNK UNK, UNKNOWN FREQ.
     Route: 065
  10. ASPIRIN [Concomitant]
     Active Substance: ASPIRIN
     Indication: Product used for unknown indication
     Dosage: UNK UNK, UNKNOWN FREQ.
     Route: 065
  11. TICAGRELOR [Concomitant]
     Active Substance: TICAGRELOR
     Indication: Product used for unknown indication
     Dosage: UNK UNK, UNKNOWN FREQ.
     Route: 065
  12. Folsyra eql pharma [Concomitant]
     Indication: Product used for unknown indication
     Dosage: UNK UNK, UNKNOWN FREQ.
     Route: 065
  13. SPIRONOLACTONE [Concomitant]
     Active Substance: SPIRONOLACTONE
     Indication: Product used for unknown indication
     Dosage: UNK UNK, UNKNOWN FREQ.
     Route: 065
  14. BISOPROLOL [Concomitant]
     Active Substance: BISOPROLOL
     Indication: Product used for unknown indication
     Dosage: UNK UNK, UNKNOWN FREQ.
     Route: 065
  15. CANDESARTAN [Concomitant]
     Active Substance: CANDESARTAN
     Indication: Product used for unknown indication
     Dosage: UNK UNK, UNKNOWN FREQ.
     Route: 065
  16. ATORVASTATIN [Concomitant]
     Active Substance: ATORVASTATIN
     Indication: Product used for unknown indication
     Dosage: UNK UNK, UNKNOWN FREQ.
     Route: 065
  17. ACETAMINOPHEN [Concomitant]
     Active Substance: ACETAMINOPHEN
     Indication: Product used for unknown indication
     Dosage: UNK UNK, UNKNOWN FREQ.
     Route: 065
  18. ATARAX [Concomitant]
     Active Substance: HYDROXYZINE HYDROCHLORIDE
     Indication: Product used for unknown indication
     Dosage: UNK UNK, UNKNOWN FREQ.
     Route: 065
  19. CITALOPRAM [Concomitant]
     Active Substance: CITALOPRAM HYDROBROMIDE
     Indication: Product used for unknown indication
     Dosage: UNK UNK, UNKNOWN FREQ.
     Route: 065
  20. NITROLINGUAL [Concomitant]
     Active Substance: NITROGLYCERIN
     Indication: Product used for unknown indication
     Dosage: UNK UNK, UNKNOWN FREQ.
     Route: 065
  21. NAPROXEN [Concomitant]
     Active Substance: NAPROXEN
     Indication: Product used for unknown indication
     Dosage: UNK UNK, UNKNOWN FREQ.
     Route: 065

REACTIONS (5)
  - Sinoatrial block [Recovered/Resolved]
  - Atrioventricular block [Recovered/Resolved]
  - Discomfort [Recovered/Resolved]
  - Dyspnoea [Recovered/Resolved]
  - Incorrect product administration duration [Recovered/Resolved]

NARRATIVE: CASE EVENT DATE: 20220427
